FAERS Safety Report 8431006-3 (Version None)
Quarter: 2012Q2

REPORT INFORMATION
  Report Type: 
  Country: None (occurrence: None)
  Receive Date: 20120612
  Receipt Date: 20120606
  Transmission Date: 20120825
  Serious: No
  Sender: FDA-Public Use
  Company Number: US-PFIZER INC-2012131423

PATIENT
  Sex: Female
  Weight: 61.224 kg

DRUGS (3)
  1. TOVIAZ [Suspect]
     Dosage: 8 MG, ONCE DAILY
     Route: 048
     Dates: start: 20120501, end: 20120501
  2. TOVIAZ [Suspect]
     Dosage: UNK, DAILY
     Route: 048
     Dates: start: 20120501, end: 20120520
  3. TOVIAZ [Suspect]
     Indication: INCONTINENCE
     Dosage: 4 MG, ONCE DAILY
     Route: 048
     Dates: start: 20120501, end: 20120501

REACTIONS (1)
  - DRY MOUTH [None]
